FAERS Safety Report 7543142-4 (Version None)
Quarter: 2011Q2

REPORT INFORMATION
  Report Type: 
  Country: None (occurrence: None)
  Receive Date: 20110613
  Receipt Date: 20110613
  Transmission Date: 20111010
  Serious: Yes (Hospitalization)
  Sender: FDA-Public Use
  Company Number: PHHO2008FR02877

PATIENT
  Sex: Female
  Weight: 56 kg

DRUGS (14)
  1. CLAMOXYL [Concomitant]
     Indication: PROPHYLAXIS
  2. NEORAL [Suspect]
     Indication: CHRONIC GRAFT VERSUS HOST DISEASE
     Dosage: 100 MG, BID
     Route: 048
     Dates: start: 20071204, end: 20080104
  3. PANTOPRAZOLE SODIUM [Concomitant]
     Indication: PROPHYLAXIS
     Dosage: UNK
  4. NOXAFIL [Concomitant]
     Indication: PROPHYLAXIS
  5. CLONAZEPAM [Concomitant]
     Indication: PROPHYLAXIS
  6. PLACEBO [Suspect]
     Indication: CHRONIC GRAFT VERSUS HOST DISEASE
     Dosage: UNK
     Route: 048
     Dates: start: 20071204
  7. VALACYCLOVIR HYDROCHLORIDE [Concomitant]
     Indication: PROPHYLAXIS
  8. BACTRIM [Concomitant]
     Indication: PROPHYLAXIS
  9. LEDERFOLIN [Concomitant]
     Indication: PROPHYLAXIS
  10. MAGNE B6 [Concomitant]
     Indication: PROPHYLAXIS
     Dosage: UNK
  11. PREDNISONE [Concomitant]
     Indication: CHRONIC GRAFT VERSUS HOST DISEASE
     Dosage: 50 MG, UNK
     Route: 048
     Dates: start: 20071218
  12. NOVOMIX [Concomitant]
     Indication: DIABETES MELLITUS
     Dosage: UNK
  13. ZOLPIDEM [Concomitant]
     Indication: PROPHYLAXIS
  14. CACIT D3 [Concomitant]
     Indication: SUPPLEMENTATION THERAPY
     Dosage: UNK

REACTIONS (3)
  - HYPONATRAEMIA [None]
  - IMMUNOSUPPRESSANT DRUG LEVEL INCREASED [None]
  - RENAL FAILURE [None]
